FAERS Safety Report 9853037 (Version 1)
Quarter: 2014Q1

REPORT INFORMATION
  Report Type: Spontaneous
  Country: NL (occurrence: None)
  Receive Date: 20140127
  Receipt Date: 20140127
  Transmission Date: 20141002
  Serious: Yes (Other)
  Sender: FDA-Public Use
  Company Number: NL-014397

PATIENT
  Age: 50 Year
  Sex: Male
  Weight: 80 kg

DRUGS (3)
  1. PICOPREP (PICOPREP) (NOT SPECIFIED) [Suspect]
     Indication: COLONOSCOPY
     Dosage: (ORAL)?
     Route: 048
     Dates: start: 20140102
  2. GLICLAZIDE [Concomitant]
  3. METFORMINE [Concomitant]

REACTIONS (1)
  - Deep vein thrombosis [None]
